FAERS Safety Report 5841263-5 (Version None)
Quarter: 2008Q3

REPORT INFORMATION
  Report Type: 
  Country: None (occurrence: None)
  Receive Date: 20080812
  Receipt Date: 20080808
  Transmission Date: 20090109
  Serious: Yes (Hospitalization)
  Sender: FDA-Public Use
  Company Number: GB-BRISTOL-MYERS SQUIBB COMPANY-14295216

PATIENT
  Age: 57 Year
  Sex: Female
  Weight: 73 kg

DRUGS (1)
  1. PACLITAXEL [Suspect]
     Indication: BREAST CANCER
     Dates: start: 20070726, end: 20070726

REACTIONS (5)
  - LIP BLISTER [None]
  - NEUTROPENIA [None]
  - PRURITUS [None]
  - PYREXIA [None]
  - RASH GENERALISED [None]
